FAERS Safety Report 4841722-8 (Version None)
Quarter: 2005Q4

REPORT INFORMATION
  Report Type: 
  Country: None (occurrence: None)
  Receive Date: 20051125
  Receipt Date: 20051107
  Transmission Date: 20060501
  Serious: Yes (Death)
  Sender: FDA-Public Use
  Company Number: 2005-BP-19718RO

PATIENT
  Age: 53 Year

DRUGS (2)
  1. THEOP (THEOPHYLLINE) [Suspect]
  2. TERBUTALINE SULFATE [Suspect]

REACTIONS (1)
  - MEDICATION ERROR [None]
